FAERS Safety Report 24924022 (Version 1)
Quarter: 2025Q1

REPORT INFORMATION
  Report Type: Spontaneous
  Country: FR (occurrence: FR)
  Receive Date: 20250204
  Receipt Date: 20250204
  Transmission Date: 20250409
  Serious: Yes (Other)
  Sender: MYLAN
  Company Number: FR-TAKEDA-2025TUS005046

PATIENT
  Age: 54 Year
  Sex: Male

DRUGS (7)
  1. DEXAMETHASONE [Suspect]
     Active Substance: DEXAMETHASONE
     Indication: Acute lymphocytic leukaemia
     Route: 065
  2. ICLUSIG [Suspect]
     Active Substance: PONATINIB HYDROCHLORIDE
     Indication: Acute lymphocytic leukaemia
     Dosage: 45 MILLIGRAM, QD
     Route: 065
  3. ICLUSIG [Suspect]
     Active Substance: PONATINIB HYDROCHLORIDE
     Dosage: 30 MILLIGRAM, QD
     Route: 065
  4. ICLUSIG [Suspect]
     Active Substance: PONATINIB HYDROCHLORIDE
     Dosage: 15 MILLIGRAM, QD
     Route: 065
  5. VINCRISTINE SULFATE [Suspect]
     Active Substance: VINCRISTINE SULFATE
     Indication: Acute lymphocytic leukaemia
     Route: 065
  6. CYCLOPHOSPHAMIDE [Suspect]
     Active Substance: CYCLOPHOSPHAMIDE
     Indication: Acute lymphocytic leukaemia
     Route: 065
  7. ADRIAMYCIN [Suspect]
     Active Substance: DOXORUBICIN HYDROCHLORIDE
     Indication: Acute lymphocytic leukaemia
     Route: 065

REACTIONS (3)
  - Toxicity to various agents [Unknown]
  - Acute lymphocytic leukaemia recurrent [Unknown]
  - Drug resistance [Unknown]
